FAERS Safety Report 23710296 (Version 3)
Quarter: 2024Q3

REPORT INFORMATION
  Report Type: Spontaneous
  Country: CA (occurrence: CA)
  Receive Date: 20240405
  Receipt Date: 20240802
  Transmission Date: 20241016
  Serious: Yes (Disabling, Other)
  Sender: CELLTRION
  Company Number: CA-CELLTRION INC.-2023CA009504

PATIENT

DRUGS (8)
  1. INFLECTRA [Suspect]
     Active Substance: INFLIXIMAB-DYYB
     Indication: Crohn^s disease
     Dosage: 5 MG/KG W0, W2, W6 AND THEN EVERY 8 WEEKS
     Route: 042
     Dates: start: 20230411
  2. INFLECTRA [Suspect]
     Active Substance: INFLIXIMAB-DYYB
     Dosage: 340 MG (5MG/KG) AFTER 2 WEEKS (WEEK 2 INDUCTION)
     Route: 042
     Dates: start: 20230427
  3. INFLECTRA [Suspect]
     Active Substance: INFLIXIMAB-DYYB
     Dosage: 350 MG (5 MG/KG) ON WEEK 6 OF INDUCTION
     Route: 042
     Dates: start: 20230525
  4. INFLECTRA [Suspect]
     Active Substance: INFLIXIMAB-DYYB
     Dosage: 340 MG, EVERY 8 WEEKS
     Route: 042
     Dates: start: 20230717
  5. INFLECTRA [Suspect]
     Active Substance: INFLIXIMAB-DYYB
     Dosage: 340 MG, AFTER 7 WEEKS (PRESCRIBED EVERY 8 WEEKS)
     Route: 042
     Dates: start: 20230907
  6. INFLECTRA [Suspect]
     Active Substance: INFLIXIMAB-DYYB
     Dosage: 350 MG (5 MG/KG), AFTER 8 WEEKS AND 5 DAYS
     Route: 042
     Dates: start: 20231107
  7. INFLECTRA [Suspect]
     Active Substance: INFLIXIMAB-DYYB
     Dosage: 700MG (10MG/KG), AFTER 9 WEEKS (PRESCRIBED EVERY 8 WEEKS)
     Route: 042
     Dates: start: 20240110
  8. INFLECTRA [Suspect]
     Active Substance: INFLIXIMAB-DYYB
     Dosage: 10 MG/KG, EVERY 8 WEEKS (630 MG AFTER 17 WEEKS)
     Route: 042
     Dates: start: 20240430

REACTIONS (12)
  - Condition aggravated [Not Recovered/Not Resolved]
  - Drug abuse [Unknown]
  - Drug specific antibody present [Unknown]
  - Nasopharyngitis [Not Recovered/Not Resolved]
  - Fatigue [Unknown]
  - Asthenia [Unknown]
  - Malaise [Unknown]
  - Off label use [Unknown]
  - Product dose omission issue [Unknown]
  - Inappropriate schedule of product administration [Unknown]
  - Weight decreased [Not Recovered/Not Resolved]
  - Eye injury [Unknown]

NARRATIVE: CASE EVENT DATE: 20230907
